FAERS Safety Report 9689165 (Version 2)
Quarter: 2014Q1

REPORT INFORMATION
  Report Type: Spontaneous
  Country: CO (occurrence: CO)
  Receive Date: 20131114
  Receipt Date: 20140305
  Transmission Date: 20141002
  Serious: Yes (Other)
  Sender: FDA-Public Use
  Company Number: CO-JNJFOC-20131104423

PATIENT
  Age: 66 Year
  Sex: Male
  Weight: 83 kg

DRUGS (14)
  1. DUROGESIC [Suspect]
     Indication: ARTHRALGIA
     Route: 062
     Dates: start: 20131101, end: 20131101
  2. DUROGESIC [Suspect]
     Indication: SPINAL PAIN
     Route: 062
     Dates: start: 20131101, end: 20131101
  3. DUODART [Concomitant]
     Dosage: 0.5 MG  + 0.4 MG
     Route: 065
  4. PRADAXA [Concomitant]
     Route: 065
  5. LOSARTAN [Concomitant]
     Indication: HYPERTENSION
     Route: 065
  6. HYDROCHLOROTHIAZIDE [Concomitant]
     Route: 048
  7. LOVASTATIN [Concomitant]
     Route: 048
  8. VERAPAMIL [Concomitant]
     Route: 065
  9. MAGNESIUM HYDROXIDE [Concomitant]
     Route: 048
  10. CALCITRIOL [Concomitant]
     Route: 048
  11. TRAZODONE [Concomitant]
     Route: 048
  12. FLUOXETINE [Concomitant]
     Route: 048
  13. LYRICA [Concomitant]
     Route: 065
  14. TRAMADOL [Concomitant]
     Route: 048

REACTIONS (6)
  - Loss of consciousness [Recovered/Resolved]
  - Tremor [Recovered/Resolved]
  - Asthenia [Recovered/Resolved]
  - Application site rash [Unknown]
  - Application site pruritus [Unknown]
  - Dry mouth [Recovered/Resolved]
